FAERS Safety Report 8229301 (Version 7)
Quarter: 2013Q2

REPORT INFORMATION
  Report Type: Spontaneous
  Country: US (occurrence: US)
  Receive Date: 20111104
  Receipt Date: 20130625
  Transmission Date: 20140414
  Serious: Yes (Hospitalization, Other)
  Sender: FDA-Public Use
  Company Number: US-009507513-1111USA00441

PATIENT
  Sex: Female
  Weight: 84.35 kg

DRUGS (2)
  1. FOSAMAX [Suspect]
     Indication: OSTEOPOROSIS
     Dosage: 70 MG, UNK
     Route: 048
     Dates: start: 2004, end: 200809
  2. PENTOXIFYLLINE [Concomitant]
     Dosage: UNK
     Dates: start: 1995

REACTIONS (65)
  - Femur fracture [Unknown]
  - Intramedullary rod insertion [Unknown]
  - Haemorrhagic anaemia [Unknown]
  - Femur fracture [Unknown]
  - Fracture [Unknown]
  - Device failure [Unknown]
  - Device failure [Unknown]
  - Intramedullary rod insertion [Unknown]
  - Device failure [Unknown]
  - Hip arthroplasty [Unknown]
  - Hip arthroplasty [Unknown]
  - Fracture nonunion [Unknown]
  - Device failure [Unknown]
  - Device failure [Unknown]
  - Hip arthroplasty [Unknown]
  - Hip arthroplasty [Unknown]
  - Cellulitis [Unknown]
  - Vertebroplasty [Unknown]
  - Spinal operation [Unknown]
  - Device related infection [Unknown]
  - Device related infection [Unknown]
  - Medical device removal [Unknown]
  - Staphylococcal infection [Unknown]
  - Appendicectomy [Unknown]
  - Cholecystectomy [Unknown]
  - Cataract operation [Unknown]
  - Hernia repair [Unknown]
  - Hearing impaired [Unknown]
  - Incisional drainage [Unknown]
  - Spinal fracture [Unknown]
  - Fall [Unknown]
  - Depression [Unknown]
  - Hysterectomy [Unknown]
  - Hyperlipidaemia [Unknown]
  - Osteoarthritis [Unknown]
  - Arrhythmia [Unknown]
  - Hypoxia [Unknown]
  - Coronary artery disease [Unknown]
  - Anxiety disorder [Unknown]
  - Incision site erythema [Not Recovered/Not Resolved]
  - Fatigue [Unknown]
  - Chest pain [Recovered/Resolved]
  - Spinal osteoarthritis [Unknown]
  - Impacted fracture [Unknown]
  - Urinary incontinence [Unknown]
  - Faecal incontinence [Unknown]
  - Dyspnoea exertional [Unknown]
  - Gait disturbance [Unknown]
  - Speech disorder [Unknown]
  - Visual impairment [Unknown]
  - Haemorrhagic anaemia [Unknown]
  - Myocardial ischaemia [Not Recovered/Not Resolved]
  - Procedural hypotension [Unknown]
  - Limb asymmetry [Unknown]
  - Haematoma [Unknown]
  - Vitamin D abnormal [Unknown]
  - Vertebroplasty [Unknown]
  - Malnutrition [Recovering/Resolving]
  - Normochromic normocytic anaemia [Unknown]
  - Peripheral vascular disorder [Unknown]
  - Arthropathy [Unknown]
  - Device failure [Unknown]
  - Musculoskeletal pain [Not Recovered/Not Resolved]
  - Arthralgia [Unknown]
  - Asthenia [Unknown]
